FAERS Safety Report 15887430 (Version 2)
Quarter: 2019Q4

REPORT INFORMATION
  Report Type: Report from Study
  Country: US (occurrence: US)
  Receive Date: 20190130
  Receipt Date: 20191202
  Transmission Date: 20200122
  Serious: Yes (Other)
  Sender: FDA-Public Use
  Company Number: US-ROCHE-2252507

PATIENT
  Age: 52 Year
  Sex: Female

DRUGS (1)
  1. OCREVUS [Suspect]
     Active Substance: OCRELIZUMAB
     Indication: RELAPSING-REMITTING MULTIPLE SCLEROSIS
     Dosage: ON 28/JAN/2019 AND 02/JUL/2019, SHE RECEIVED OCRELIZUMAB INFUSION.
     Route: 042
     Dates: start: 20180709

REACTIONS (6)
  - Bronchitis [Recovered/Resolved]
  - Rash [Recovered/Resolved]
  - Muscle spasticity [Not Recovered/Not Resolved]
  - Kidney infection [Recovering/Resolving]
  - Poor quality sleep [Not Recovered/Not Resolved]
  - Flushing [Recovered/Resolved]

NARRATIVE: CASE EVENT DATE: 20180709
